FAERS Safety Report 10205800 (Version 1)
Quarter: 2014Q2

REPORT INFORMATION
  Report Type: Report from Study
  Country: US (occurrence: US)
  Receive Date: 20140530
  Receipt Date: 20140530
  Transmission Date: 20141212
  Serious: Yes (Hospitalization)
  Sender: FDA-Public Use
  Company Number: US-BIOGENIDEC-2014BI049937

PATIENT
  Age: 45 Year
  Sex: Male

DRUGS (3)
  1. AVONEX [Suspect]
     Indication: MULTIPLE SCLEROSIS
     Route: 030
     Dates: start: 201305
  2. TRILEPTAL [Concomitant]
  3. TEGRETOL [Concomitant]

REACTIONS (2)
  - Wrong drug administered [Recovered/Resolved]
  - Joint injury [Recovered/Resolved]
